FAERS Safety Report 8349267 (Version 3)
Quarter: 2013Q1

REPORT INFORMATION
  Report Type: Report from Study
  Country: IT (occurrence: IT)
  Receive Date: 20120123
  Receipt Date: 20130315
  Transmission Date: 20140127
  Serious: Yes (Hospitalization, Other)
  Sender: FDA-Public Use
  Company Number: PHHO2012IT001431

PATIENT
  Age: 43 Year
  Sex: Female
  Weight: 57 kg

DRUGS (3)
  1. FTY [Suspect]
     Indication: MULTIPLE SCLEROSIS
     Dosage: 0.5 MG, QD
     Route: 048
     Dates: start: 20110325
  2. LYRICA [Concomitant]
     Indication: ANXIETY
     Dosage: 50 MG, UNK
     Dates: start: 20110906
  3. ELOPRAM [Concomitant]
     Indication: INSOMNIA
     Dosage: 11 GTT, UNK
     Dates: start: 20091221

REACTIONS (1)
  - Basal cell carcinoma [Recovered/Resolved]
